FAERS Safety Report 10776027 (Version 1)
Quarter: 2015Q1

REPORT INFORMATION
  Report Type: Spontaneous
  Country: US (occurrence: None)
  Receive Date: 20150209
  Receipt Date: 20150209
  Transmission Date: 20150721
  Serious: Yes (Other)
  Sender: FDA-Public Use
  Company Number: None

PATIENT
  Age: 30 Year
  Sex: Female
  Weight: 59.88 kg

DRUGS (1)
  1. MIFEPREX [Suspect]
     Active Substance: MIFEPRISTONE
     Indication: ABORTION INDUCED
     Dosage: 3 PILLS  ONE TIME ORAL
     Route: 048
     Dates: start: 20150120, end: 20150120

REACTIONS (1)
  - Treatment failure [None]

NARRATIVE: CASE EVENT DATE: 20150204
